FAERS Safety Report 8460337 (Version 2)
Quarter: 2013Q4

REPORT INFORMATION
  Report Type: Spontaneous
  Country: US (occurrence: US)
  Receive Date: 20120315
  Receipt Date: 20131125
  Transmission Date: 20140711
  Serious: Yes (Other)
  Sender: FDA-Public Use
  Company Number: US-JNJFOC-20120304052

PATIENT
  Age: 43 Year
  Sex: Female
  Weight: 58.97 kg

DRUGS (8)
  1. DURAGESIC [Suspect]
     Indication: SCOLIOSIS
     Route: 062
  2. DURAGESIC [Suspect]
     Indication: SPINAL OSTEOARTHRITIS
     Route: 062
  3. UNSPECIFIED FENTANYL TRANSDERMAL SYSTEM [Suspect]
     Indication: SCOLIOSIS
     Route: 062
  4. UNSPECIFIED FENTANYL TRANSDERMAL SYSTEM [Suspect]
     Indication: SPINAL OSTEOARTHRITIS
     Route: 062
  5. FENTANYL [Suspect]
     Indication: PRODUCT USED FOR UNKNOWN INDICATION
     Route: 062
  6. OXYCONTIN [Suspect]
     Indication: PAIN
     Route: 065
  7. OPANA [Concomitant]
     Route: 065
  8. DEXILANT [Concomitant]
     Indication: ULCER
     Route: 065

REACTIONS (11)
  - Intestinal obstruction [Recovered/Resolved]
  - Pain [Not Recovered/Not Resolved]
  - Product tampering [Unknown]
  - Wrong technique in drug usage process [Not Recovered/Not Resolved]
  - Constipation [Not Recovered/Not Resolved]
  - Insomnia [Not Recovered/Not Resolved]
  - Fatigue [Not Recovered/Not Resolved]
  - Product quality issue [Unknown]
  - Product quality issue [Unknown]
  - Product packaging quantity issue [Unknown]
  - Wrong technique in drug usage process [Unknown]
